FAERS Safety Report 5799102-7 (Version None)
Quarter: 2008Q3

REPORT INFORMATION
  Report Type: 
  Country: None (occurrence: None)
  Receive Date: 20080702
  Receipt Date: 20071206
  Transmission Date: 20090109
  Serious: No
  Sender: FDA-Public Use
  Company Number: US-BOEHRINGER INGELHEIM GMBH, GERMANY-2007-BP-02679BP

PATIENT
  Sex: Male
  Weight: 91 kg

DRUGS (5)
  1. MIRAPEX [Suspect]
     Indication: PARKINSON'S DISEASE
     Dates: start: 20030612, end: 20060612
  2. LOVASTATIN [Concomitant]
     Indication: BLOOD CHOLESTEROL INCREASED
     Dates: start: 20000101
  3. PAROXETINE HCL [Concomitant]
     Indication: DEPRESSION
     Dates: start: 19990101
  4. PAROXETINE HCL [Concomitant]
     Indication: ANXIETY
  5. ALPRAZOLAM [Concomitant]
     Dates: start: 20030501

REACTIONS (7)
  - COMPULSIVE SEXUAL BEHAVIOUR [None]
  - DEPRESSION [None]
  - DRUG ABUSE [None]
  - EMOTIONAL DISTRESS [None]
  - INJURY [None]
  - OBSESSIVE-COMPULSIVE DISORDER [None]
  - PATHOLOGICAL GAMBLING [None]
